FAERS Safety Report 8506892-9 (Version None)
Quarter: 2012Q3

REPORT INFORMATION
  Report Type: 
  Country: None (occurrence: None)
  Receive Date: 20120712
  Receipt Date: 20120703
  Transmission Date: 20120928
  Serious: Yes (Hospitalization, Other)
  Sender: FDA-Public Use
  Company Number: US-009507513-1202USA02454

PATIENT

DRUGS (7)
  1. FOSAMAX [Suspect]
     Indication: OSTEOPOROSIS
     Dosage: 10 MG, QD
     Route: 048
     Dates: end: 20070101
  2. IMIPRAMINE HCL [Concomitant]
     Dosage: 20 MG, QD
     Route: 048
  3. LOVENOX [Concomitant]
     Indication: THROMBOSIS PROPHYLAXIS
     Dosage: FOR 20 DAYS
     Route: 058
  4. ZYRTEC [Concomitant]
     Dosage: 5 MG, QD
     Route: 048
  5. MK-9278 [Concomitant]
     Dosage: UNK UNK, QD
     Route: 048
  6. CALCIUM ACETATE [Concomitant]
     Dosage: 667 MG, BID
     Route: 048
  7. PREMARIN [Concomitant]
     Dosage: 0.625 MG, QD
     Route: 048

REACTIONS (29)
  - FEMUR FRACTURE [None]
  - CHOLELITHIASIS [None]
  - RENAL FAILURE CHRONIC [None]
  - HYPOKALAEMIA [None]
  - SEASONAL ALLERGY [None]
  - FRACTURE NONUNION [None]
  - ANXIETY [None]
  - BURSITIS [None]
  - HYPERTONIC BLADDER [None]
  - RHINITIS [None]
  - FALL [None]
  - CHRONIC SINUSITIS [None]
  - INSOMNIA [None]
  - PAIN [None]
  - DEPRESSION [None]
  - LOW TURNOVER OSTEOPATHY [None]
  - UTERINE DISORDER [None]
  - INTERVERTEBRAL DISC DEGENERATION [None]
  - URGE INCONTINENCE [None]
  - VITAMIN D DEFICIENCY [None]
  - ANAEMIA [None]
  - HYPERLIPIDAEMIA [None]
  - OSTEOARTHRITIS [None]
  - INCONTINENCE [None]
  - CYSTITIS [None]
  - DEVICE FAILURE [None]
  - ARTHROPATHY [None]
  - HAEMATOMA [None]
  - VISUAL IMPAIRMENT [None]
